FAERS Safety Report 9171769 (Version 1)
Quarter: 2013Q1

REPORT INFORMATION
  Report Type: Spontaneous
  Country: IL (occurrence: IL)
  Receive Date: 20130319
  Receipt Date: 20130319
  Transmission Date: 20140127
  Serious: Yes (Other)
  Sender: FDA-Public Use
  Company Number: PHHY2013IL013272

PATIENT
  Age: 55 Year
  Sex: Male

DRUGS (2)
  1. EXFORGE [Suspect]
     Dosage: 1 DF, (160 MG VALS AND 5 MG AMLO)
     Route: 048
  2. EXFORGE [Suspect]
     Dosage: COMBINATION OF 160/5 MG AND 160/10 MG

REACTIONS (3)
  - Intraocular pressure test abnormal [Not Recovered/Not Resolved]
  - Blood pressure increased [Recovering/Resolving]
  - Drug ineffective [Unknown]
